FAERS Safety Report 13530380 (Version 3)
Quarter: 2023Q1

REPORT INFORMATION
  Report Type: Spontaneous
  Country: RS (occurrence: RS)
  Receive Date: 20170509
  Receipt Date: 20230119
  Transmission Date: 20230417
  Serious: Yes (Life-Threatening, Hospitalization, Other)
  Sender: FDA-Public Use
  Company Number: RS-002147023-PHHY2017RS065130

PATIENT
  Age: 31 Year
  Sex: Male

DRUGS (4)
  1. CLOZAPINE [Suspect]
     Active Substance: CLOZAPINE
     Indication: Product used for unknown indication
     Dosage: UNK
     Route: 065
  2. DIAZEPAM [Concomitant]
     Active Substance: DIAZEPAM
     Indication: Product used for unknown indication
     Dosage: UNK
     Route: 065
  3. HALOPERIDOL [Concomitant]
     Active Substance: HALOPERIDOL
     Indication: Product used for unknown indication
     Dosage: UNK
     Route: 065
  4. BIPERIDEN [Concomitant]
     Active Substance: BIPERIDEN
     Indication: Product used for unknown indication
     Dosage: UNK
     Route: 065

REACTIONS (22)
  - Acute respiratory failure [Recovered/Resolved]
  - Overdose [Recovered/Resolved]
  - Loss of consciousness [Recovered/Resolved]
  - Salivary hypersecretion [Recovered/Resolved]
  - Pupillary disorder [Recovered/Resolved]
  - Intestinal pseudo-obstruction [Recovered/Resolved]
  - Small intestinal haemorrhage [Recovered/Resolved]
  - Haematemesis [Recovered/Resolved]
  - Haemoglobin decreased [Recovered/Resolved]
  - Pneumonia [Recovered/Resolved]
  - Duodenal ulcer [Recovered/Resolved]
  - Intestinal dilatation [Recovered/Resolved]
  - Gastric dilatation [Recovered/Resolved]
  - Haematocrit decreased [Recovered/Resolved]
  - Abdominal distension [Recovered/Resolved]
  - Gastrointestinal sounds abnormal [Recovered/Resolved]
  - Nausea [Recovered/Resolved]
  - Sinus tachycardia [Recovered/Resolved]
  - Antipsychotic drug level decreased [Recovered/Resolved]
  - Febrile infection [Recovered/Resolved]
  - White blood cell count increased [Recovered/Resolved]
  - Oesophagitis [Recovered/Resolved]
